FAERS Safety Report 14204114 (Version 1)
Quarter: 2017Q4

REPORT INFORMATION
  Report Type: Spontaneous
  Country: US (occurrence: US)
  Receive Date: 20171117
  Receipt Date: 20171117
  Transmission Date: 20180321
  Serious: No
  Sender: FDA-Public Use
  Company Number: None

PATIENT
  Sex: Female
  Weight: 105.3 kg

DRUGS (1)
  1. NEXPLANON [Suspect]
     Active Substance: ETONOGESTREL
     Indication: CONTRACEPTION
     Route: 058

REACTIONS (9)
  - Oligomenorrhoea [None]
  - Musculoskeletal chest pain [None]
  - Device breakage [None]
  - Hypoaesthesia [None]
  - Anxiety [None]
  - Pain in extremity [None]
  - Menorrhagia [None]
  - Chest pain [None]
  - Complication associated with device [None]

NARRATIVE: CASE EVENT DATE: 20160501
